FAERS Safety Report 6085537-4 (Version None)
Quarter: 2009Q1

REPORT INFORMATION
  Report Type: 
  Country: None (occurrence: None)
  Receive Date: 20090217
  Receipt Date: 20090217
  Transmission Date: 20090719
  Serious: Yes (Disabling)
  Sender: FDA-Public Use
  Company Number: None

PATIENT
  Age: 64 Year
  Sex: Male
  Weight: 74.8435 kg

DRUGS (1)
  1. LYRICA [Suspect]
     Indication: PHANTOM PAIN
     Dosage: 150 MG ONCE DAILY PO
     Route: 048
     Dates: start: 20060801, end: 20090216

REACTIONS (3)
  - DENTAL CARIES [None]
  - TOOTH DISORDER [None]
  - TOOTH FRACTURE [None]
